FAERS Safety Report 5918038-1 (Version None)
Quarter: 2008Q4

REPORT INFORMATION
  Report Type: 
  Country: None (occurrence: None)
  Receive Date: 20081014
  Receipt Date: 20081006
  Transmission Date: 20090506
  Serious: Yes (Hospitalization)
  Sender: FDA-Public Use
  Company Number: US-ELI_LILLY_AND_COMPANY-US200809003919

PATIENT
  Sex: Female
  Weight: 108.84 kg

DRUGS (6)
  1. BYETTA [Suspect]
     Indication: INSULIN RESISTANCE
     Dosage: 10 UG, 2/D
     Route: 058
     Dates: end: 20080901
  2. METFORMIN [Concomitant]
     Indication: TYPE 2 DIABETES MELLITUS
     Dosage: 500 MG, 3/D
  3. ACTOS [Concomitant]
     Indication: TYPE 2 DIABETES MELLITUS
     Dosage: 45 MG, DAILY (1/D)
  4. ALBUTEROL [Concomitant]
  5. ACIPHEX [Concomitant]
  6. ORAL CONTRACEPTIVE NOS [Concomitant]
     Indication: CONTRACEPTION
     Route: 048
     Dates: start: 20050713

REACTIONS (11)
  - BLOOD CHOLESTEROL INCREASED [None]
  - BLOOD CREATININE INCREASED [None]
  - BLOOD IRON DECREASED [None]
  - BLOOD TRIGLYCERIDES INCREASED [None]
  - DIABETIC KETOACIDOSIS [None]
  - GLYCOSYLATED HAEMOGLOBIN INCREASED [None]
  - PANCREATITIS [None]
  - PLATELET COUNT INCREASED [None]
  - VITAMIN B12 DECREASED [None]
  - WEIGHT INCREASED [None]
  - WHITE BLOOD CELL COUNT [None]
